FAERS Safety Report 25374763 (Version 1)
Quarter: 2025Q2

REPORT INFORMATION
  Report Type: Report from Study
  Country: US (occurrence: US)
  Receive Date: 20250529
  Receipt Date: 20250529
  Transmission Date: 20250716
  Serious: No
  Sender: SANDOZ
  Company Number: US-SANDOZ-SDZ2025US034346

PATIENT
  Sex: Female

DRUGS (2)
  1. OMNITROPE [Suspect]
     Active Substance: SOMATROPIN
     Indication: Musculoskeletal disorder
     Dosage: 1.8 MG 2 DOSE EVERY (10 MG / 1.5 ML)
     Route: 058
  2. OMNITROPE [Suspect]
     Active Substance: SOMATROPIN
     Indication: Musculoskeletal disorder
     Dosage: 1.8 MG 2 DOSE EVERY (10 MG / 1.5 ML)
     Route: 058

REACTIONS (3)
  - Off label use [Unknown]
  - Incorrect dose administered by device [Unknown]
  - Device issue [Unknown]
